FAERS Safety Report 13581527 (Version 3)
Quarter: 2017Q2

REPORT INFORMATION
  Report Type: Spontaneous
  Country: ES (occurrence: ES)
  Receive Date: 20170525
  Receipt Date: 20170529
  Transmission Date: 20170830
  Serious: Yes (Death, Hospitalization, Other)
  Sender: FDA-Public Use
  Company Number: ES-009507513-1705ESP012325

PATIENT
  Age: 47 Year
  Sex: Male

DRUGS (1)
  1. KEYTRUDA [Suspect]
     Active Substance: PEMBROLIZUMAB
     Indication: NON-SMALL CELL LUNG CANCER
     Dosage: 2MG/KG EVERY 3 WEEKS
     Dates: start: 201703, end: 201705

REACTIONS (2)
  - Lung abscess [Recovered/Resolved]
  - Pneumothorax [Fatal]

NARRATIVE: CASE EVENT DATE: 201705
